FAERS Safety Report 10176853 (Version 1)
Quarter: 2014Q2

REPORT INFORMATION
  Report Type: Spontaneous
  Country: US (occurrence: US)
  Receive Date: 20140516
  Receipt Date: 20140516
  Transmission Date: 20141212
  Serious: Yes (Hospitalization)
  Sender: FDA-Public Use
  Company Number: US-ELI_LILLY_AND_COMPANY-US201405001781

PATIENT
  Age: 17 Year
  Sex: Male

DRUGS (1)
  1. PROZAC [Suspect]
     Indication: SUICIDE ATTEMPT
     Dosage: 1 DF, UNKNOWN
     Route: 065
     Dates: start: 2003, end: 2004

REACTIONS (1)
  - Mental disorder [Unknown]
